FAERS Safety Report 10144916 (Version 1)
Quarter: 2014Q2

REPORT INFORMATION
  Report Type: Spontaneous
  Country: US (occurrence: US)
  Receive Date: 20140430
  Receipt Date: 20140430
  Transmission Date: 20141212
  Serious: Yes (Other)
  Sender: FDA-Public Use
  Company Number: US-SA-2014SA002136

PATIENT
  Age: 40 Year
  Sex: Female
  Weight: 83.91 kg

DRUGS (1)
  1. DEMEROL [Suspect]
     Route: 065

REACTIONS (1)
  - Hallucination [Unknown]
